FAERS Safety Report 18732806 (Version 3)
Quarter: 2021Q1

REPORT INFORMATION
  Report Type: Report from Study
  Country: FR (occurrence: FR)
  Receive Date: 20210112
  Receipt Date: 20210224
  Transmission Date: 20210419
  Serious: No
  Sender: FDA-Public Use
  Company Number: FR-GILEAD-2021-0511931

PATIENT
  Sex: Male
  Weight: 91 kg

DRUGS (2)
  1. REMDESIVIR. [Suspect]
     Active Substance: REMDESIVIR
     Indication: COVID-19
     Dosage: 200 MG
     Route: 042
     Dates: start: 20200925, end: 20200925
  2. REMDESIVIR. [Suspect]
     Active Substance: REMDESIVIR
     Dosage: 100 MG
     Route: 042
     Dates: start: 20200926, end: 20201004

REACTIONS (1)
  - Product preparation issue [Recovered/Resolved]

NARRATIVE: CASE EVENT DATE: 20200925
